FAERS Safety Report 4704273-7 (Version None)
Quarter: 2005Q2

REPORT INFORMATION
  Report Type: 
  Country: None (occurrence: None)
  Receive Date: 20050630
  Receipt Date: 20050624
  Transmission Date: 20051028
  Serious: Yes (Hospitalization)
  Sender: FDA-Public Use
  Company Number: 2005CG01157

PATIENT
  Age: 47 Year
  Sex: Male

DRUGS (6)
  1. NEXIUM [Suspect]
     Route: 048
     Dates: start: 20050518, end: 20050524
  2. AUGMENTIN [Suspect]
     Route: 042
     Dates: start: 20050516, end: 20050520
  3. AUGMENTIN [Suspect]
     Route: 048
     Dates: start: 20050520, end: 20050524
  4. SOLUPRED [Suspect]
     Route: 048
     Dates: start: 20050520, end: 20050524
  5. CIFLOX [Concomitant]
     Route: 042
     Dates: start: 20050516, end: 20050519
  6. CIFLOX [Concomitant]
     Route: 048
     Dates: start: 20050519, end: 20050520

REACTIONS (3)
  - ARTHRALGIA [None]
  - PURPURA [None]
  - TOXIC SKIN ERUPTION [None]
